FAERS Safety Report 23694113 (Version 1)
Quarter: 2024Q2

REPORT INFORMATION
  Report Type: Spontaneous
  Country: JP (occurrence: JP)
  Receive Date: 20240401
  Receipt Date: 20240401
  Transmission Date: 20240716
  Serious: Yes (Other)
  Sender: FDA-Public Use
  Company Number: JP-OTSUKA-2024_008035

PATIENT
  Age: 61 Year
  Sex: Male

DRUGS (8)
  1. BUSULFEX [Suspect]
     Active Substance: BUSULFAN
     Indication: Unrelated donor bone marrow transplantation therapy
     Dosage: 6.4 MG/KG/DAY
     Route: 065
  2. FLUDARABINE PHOSPHATE [Suspect]
     Active Substance: FLUDARABINE PHOSPHATE
     Indication: Unrelated donor bone marrow transplantation therapy
     Dosage: 150 MG/M2/DAY
     Route: 065
  3. MELPHALAN [Suspect]
     Active Substance: MELPHALAN
     Indication: Unrelated donor bone marrow transplantation therapy
     Dosage: 80 MG/M2/DAY
     Route: 065
  4. TACROLIMUS [Concomitant]
     Active Substance: TACROLIMUS
     Indication: Prophylaxis against graft versus host disease
     Dosage: UNK
     Route: 065
  5. MYCOPHENOLATE MOFETIL [Concomitant]
     Active Substance: MYCOPHENOLATE MOFETIL
     Indication: Prophylaxis against graft versus host disease
     Dosage: UNK
     Route: 065
  6. METHYLPREDNISOLONE [Concomitant]
     Active Substance: METHYLPREDNISOLONE
     Indication: Product used for unknown indication
     Dosage: 2 MG/KG/DAY
     Route: 065
  7. REMESTEMCEL-L [Concomitant]
     Active Substance: REMESTEMCEL-L
     Indication: Graft versus host disease
     Dosage: UNK
     Route: 065
  8. URSODIOL [Concomitant]
     Active Substance: URSODIOL
     Indication: Prophylaxis
     Dosage: 600 MG/DAY
     Route: 065

REACTIONS (3)
  - Acute kidney injury [Unknown]
  - Pancreatitis acute [Unknown]
  - Venoocclusive liver disease [Recovered/Resolved]
